FAERS Safety Report 13577109 (Version 1)
Quarter: 2017Q2

REPORT INFORMATION
  Report Type: Spontaneous
  Country: JP (occurrence: JP)
  Receive Date: 20170524
  Receipt Date: 20170524
  Transmission Date: 20170830
  Serious: Yes (Other)
  Sender: FDA-Public Use
  Company Number: JP-PFIZER INC-2017222392

PATIENT
  Sex: Female

DRUGS (1)
  1. LYRICA [Suspect]
     Active Substance: PREGABALIN
     Dosage: UNK
     Route: 048

REACTIONS (11)
  - Weight decreased [Unknown]
  - Gait disturbance [Unknown]
  - Malaise [Unknown]
  - Hypoaesthesia [Unknown]
  - Cervical spinal stenosis [Unknown]
  - Abdominal distension [Unknown]
  - Condition aggravated [Unknown]
  - Diarrhoea [Unknown]
  - Gastrointestinal mucosal exfoliation [Unknown]
  - Listless [Unknown]
  - Feeding disorder [Unknown]

NARRATIVE: CASE EVENT DATE: 20170518
